FAERS Safety Report 25498559 (Version 2)
Quarter: 2025Q3

REPORT INFORMATION
  Report Type: Spontaneous
  Country: US (occurrence: US)
  Receive Date: 20250701
  Receipt Date: 20250924
  Transmission Date: 20251020
  Serious: Yes (Other)
  Sender: BAYER HEALTHCARE PHARMACEUTICALS INC.
  Company Number: US-BAYER-2025A085630

PATIENT
  Age: 51 Year
  Sex: Male

DRUGS (3)
  1. JIVI [Suspect]
     Active Substance: DAMOCTOCOG ALFA PEGOL
     Indication: Factor VIII deficiency
  2. JIVI [Suspect]
     Active Substance: DAMOCTOCOG ALFA PEGOL
     Indication: Factor VIII deficiency
  3. JIVI [Suspect]
     Active Substance: DAMOCTOCOG ALFA PEGOL
     Indication: Factor VIII deficiency

REACTIONS (1)
  - Muscle rupture [None]

NARRATIVE: CASE EVENT DATE: 20240901
